FAERS Safety Report 4426562-6 (Version None)
Quarter: 2004Q3

REPORT INFORMATION
  Report Type: 
  Country: None (occurrence: None)
  Receive Date: 20040816
  Receipt Date: 20040805
  Transmission Date: 20050211
  Serious: Yes (Hospitalization)
  Sender: FDA-Public Use
  Company Number: US-BRISTOL-MYERS SQUIBB COMPANY-12664785

PATIENT
  Age: 71 Year
  Sex: Female
  Weight: 93 kg

DRUGS (9)
  1. PARAPLATIN [Suspect]
     Indication: ENDOMETRIAL CANCER
     Dosage: PREVIOUS DOSE: 375 MG
     Route: 042
  2. TAXOL [Concomitant]
     Indication: ENDOMETRIAL CANCER
  3. HYTRIN [Concomitant]
  4. TOPROL-XL [Concomitant]
  5. NORVASC [Concomitant]
  6. BENADRYL [Concomitant]
     Indication: PREMEDICATION
     Route: 042
  7. ZOFRAN [Concomitant]
     Indication: PREMEDICATION
     Dosage: RANGES FROM 16 TO 20MG
     Route: 042
  8. DECADRON [Concomitant]
     Indication: PREMEDICATION
     Route: 042
  9. ZANTAC [Concomitant]
     Indication: PREMEDICATION
     Route: 042

REACTIONS (1)
  - ACUTE MYOCARDIAL INFARCTION [None]
